FAERS Safety Report 15288963 (Version 2)
Quarter: 2018Q3

REPORT INFORMATION
  Report Type: Report from Study
  Country: CO (occurrence: CO)
  Receive Date: 20180817
  Receipt Date: 20180928
  Transmission Date: 20181010
  Serious: Yes (Hospitalization)
  Sender: FDA-Public Use
  Company Number: CO-BAYER-2018-151041

PATIENT
  Age: 25 Year
  Sex: Female

DRUGS (3)
  1. BISOPROLOL [Concomitant]
     Active Substance: BISOPROLOL
     Dosage: UNK
  2. ADEMPAS [Suspect]
     Active Substance: RIOCIGUAT
     Indication: PULMONARY ARTERIAL HYPERTENSION
     Dosage: UNK
     Dates: start: 20150304
  3. OXOGEN [Concomitant]
     Dosage: UNK

REACTIONS (10)
  - Diarrhoea [Unknown]
  - Speech disorder [Unknown]
  - Brain hypoxia [Unknown]
  - Asthenia [Unknown]
  - Platelet count decreased [Unknown]
  - Hemiplegia [Unknown]
  - Amnesia [Unknown]
  - Dehydration [Unknown]
  - Haemoglobin decreased [Unknown]
  - Feeling abnormal [Unknown]

NARRATIVE: CASE EVENT DATE: 20180805
